FAERS Safety Report 19901359 (Version 1)
Quarter: 2021Q3

REPORT INFORMATION
  Report Type: Spontaneous
  Country: US (occurrence: US)
  Receive Date: 20210930
  Receipt Date: 20210930
  Transmission Date: 20211014
  Serious: Yes (Other)
  Sender: FDA-Public Use
  Company Number: None

PATIENT
  Age: 56 Year
  Sex: Male
  Weight: 83.25 kg

DRUGS (1)
  1. PRIVIGEN [Suspect]
     Active Substance: HUMAN IMMUNOGLOBULIN G
     Indication: IMMUNODEFICIENCY
     Dosage: ?          OTHER FREQUENCY:Q 4 WEEKS;?
     Route: 042

REACTIONS (3)
  - Speech disorder [None]
  - Blood pressure decreased [None]
  - Confusional state [None]

NARRATIVE: CASE EVENT DATE: 20210929
